FAERS Safety Report 9679200 (Version 1)
Quarter: 2013Q4

REPORT INFORMATION
  Report Type: Spontaneous
  Country: US (occurrence: US)
  Receive Date: 20131108
  Receipt Date: 20131108
  Transmission Date: 20140711
  Serious: Yes (Other)
  Sender: FDA-Public Use
  Company Number: US-ROXANE LABORATORIES, INC.-2013-RO-01801RO

PATIENT
  Sex: Male

DRUGS (3)
  1. MORPHINE [Suspect]
     Indication: TINNITUS
     Route: 048
     Dates: start: 20131022
  2. MORPHINE ER [Concomitant]
     Indication: TINNITUS
     Dosage: 200 MG
     Route: 048
  3. XANAX [Concomitant]
     Indication: PANIC ATTACK

REACTIONS (3)
  - Hallucination [Recovered/Resolved]
  - Loss of consciousness [Recovered/Resolved]
  - Drug dispensing error [Recovered/Resolved]
